FAERS Safety Report 7818921-6 (Version None)
Quarter: 2011Q4

REPORT INFORMATION
  Report Type: 
  Country: None (occurrence: None)
  Receive Date: 20111017
  Receipt Date: 20111017
  Transmission Date: 20120403
  Serious: Yes (Hospitalization)
  Sender: FDA-Public Use
  Company Number: None

PATIENT
  Sex: Female
  Weight: 63 kg

DRUGS (2)
  1. BEVACIZUMAB (RHUMAB VEGF) [Suspect]
     Dosage: 315 MG
     Dates: end: 20110829
  2. FLUOROURACIL [Suspect]
     Dosage: 3628 MG
     Dates: end: 20110831

REACTIONS (10)
  - DIARRHOEA [None]
  - PNEUMONIA KLEBSIELLA [None]
  - FALL [None]
  - CULTURE URINE POSITIVE [None]
  - ASTHENIA [None]
  - MENTAL STATUS CHANGES [None]
  - OEDEMA PERIPHERAL [None]
  - DEEP VEIN THROMBOSIS [None]
  - HYPOVOLAEMIA [None]
  - URINARY TRACT INFECTION [None]
